FAERS Safety Report 15897339 (Version 1)
Quarter: 2019Q1

REPORT INFORMATION
  Report Type: Spontaneous
  Country: ES (occurrence: ES)
  Receive Date: 20190131
  Receipt Date: 20190131
  Transmission Date: 20190417
  Serious: Yes (Other)
  Sender: FDA-Public Use
  Company Number: ES-TEIKOKU PHARMA USA-TPU2019-00055

PATIENT
  Age: 63 Year
  Sex: Female
  Weight: 79 kg

DRUGS (14)
  1. ADOLONTA RETARD 50 [Suspect]
     Active Substance: TRAMADOL HYDROCHLORIDE
     Indication: PRODUCT USED FOR UNKNOWN INDICATION
     Route: 048
     Dates: start: 20181121
  2. FENTANILO MATRIX [Suspect]
     Active Substance: FENTANYL
     Indication: PRODUCT USED FOR UNKNOWN INDICATION
     Route: 062
     Dates: start: 20181121
  3. SIMVASTATINA APOTEX [Concomitant]
  4. METFORMINA TEVA [Concomitant]
     Active Substance: METFORMIN HYDROCHLORIDE
  5. TRAMADOL/PARACETAMOL APOTEX [Suspect]
     Active Substance: ACETAMINOPHEN\TRAMADOL HYDROCHLORIDE
     Indication: PRODUCT USED FOR UNKNOWN INDICATION
     Route: 048
     Dates: start: 20180221
  6. EMCORETIC [Concomitant]
     Active Substance: BISOPROLOL FUMARATE\HYDROCHLOROTHIAZIDE
  7. GABAPENTINA CINFA [Suspect]
     Active Substance: GABAPENTIN
     Indication: PRODUCT USED FOR UNKNOWN INDICATION
     Route: 048
     Dates: start: 20181105, end: 20181219
  8. OTHER THERAPEUTIC PRODUCTS [Suspect]
     Active Substance: UNSPECIFIED INGREDIENT
     Indication: PRODUCT USED FOR UNKNOWN INDICATION
     Route: 048
     Dates: start: 20180522, end: 20181116
  9. ZOLPIDEM [Suspect]
     Active Substance: ZOLPIDEM\ZOLPIDEM TARTRATE
     Route: 048
     Dates: start: 20180910, end: 20181111
  10. ETORICOXIB. [Concomitant]
     Active Substance: ETORICOXIB
  11. TOVIAZ [Concomitant]
     Active Substance: FESOTERODINE FUMARATE
  12. VERSATIS [Suspect]
     Active Substance: LIDOCAINE
     Indication: PRODUCT USED FOR UNKNOWN INDICATION
     Route: 062
     Dates: start: 20180117
  13. DORMODOR [Suspect]
     Active Substance: FLURAZEPAM HYDROCHLORIDE
     Indication: PRODUCT USED FOR UNKNOWN INDICATION
     Route: 048
     Dates: start: 20181015, end: 20181121
  14. PEPTICUM [Concomitant]
     Active Substance: OMEPRAZOLE

REACTIONS (2)
  - Somnolence [Recovered/Resolved]
  - Dry mouth [Recovered/Resolved]

NARRATIVE: CASE EVENT DATE: 20181105
